FAERS Safety Report 23225902 (Version 1)
Quarter: 2023Q4

REPORT INFORMATION
  Report Type: Spontaneous
  Country: CA (occurrence: CA)
  Receive Date: 20231124
  Receipt Date: 20231124
  Transmission Date: 20240110
  Serious: Yes (Other)
  Sender: FDA-Public Use
  Company Number: CA-SA-2023SA135373

PATIENT

DRUGS (8)
  1. HYDROXYCHLOROQUINE [Suspect]
     Active Substance: HYDROXYCHLOROQUINE
     Dosage: UNK (PLAQUENIL)
  2. ABRILADA [Concomitant]
     Active Substance: ADALIMUMAB-AFZB
     Indication: Ankylosing spondylitis
     Dosage: 40 MG, QOW
     Route: 058
     Dates: start: 2022
  3. ABRILADA [Concomitant]
     Active Substance: ADALIMUMAB-AFZB
     Dosage: 40 MG, QM
     Dates: start: 202301
  4. ABRILADA [Concomitant]
     Active Substance: ADALIMUMAB-AFZB
     Dosage: 40 MG, QOW
     Route: 058
     Dates: start: 202302
  5. DEXILANT [Concomitant]
     Active Substance: DEXLANSOPRAZOLE
     Dosage: UNK
  6. SYNTHROID [Concomitant]
     Active Substance: LEVOTHYROXINE SODIUM
     Dosage: UNK
  7. VAGIFEM [Concomitant]
     Active Substance: ESTRADIOL
     Dosage: UNK
  8. LIPITOR [Concomitant]
     Active Substance: ATORVASTATIN CALCIUM
     Indication: Dyslipidaemia
     Dosage: UNK
     Dates: start: 202211, end: 2023

REACTIONS (2)
  - Rectal haemorrhage [Unknown]
  - Vision blurred [Unknown]
